FAERS Safety Report 6022415-0 (Version None)
Quarter: 2008Q4

REPORT INFORMATION
  Report Type: 
  Country: None (occurrence: None)
  Receive Date: 20081223
  Receipt Date: 20081223
  Transmission Date: 20090506
  Serious: Yes (Other)
  Sender: FDA-Public Use
  Company Number: None

PATIENT
  Age: 46 Year
  Sex: Female

DRUGS (1)
  1. VIVELLE-DOT [Suspect]
     Indication: HORMONE REPLACEMENT THERAPY
     Dosage: ONE PATCH TWICE WEEK SINCE LATE 2005 TO PRESENT
     Dates: start: 20050101

REACTIONS (6)
  - ALOPECIA [None]
  - HAIR TEXTURE ABNORMAL [None]
  - HEADACHE [None]
  - POOR QUALITY SLEEP [None]
  - PRODUCT QUALITY ISSUE [None]
  - TEMPERATURE INTOLERANCE [None]
